FAERS Safety Report 25710693 (Version 1)
Quarter: 2025Q3

REPORT INFORMATION
  Report Type: Spontaneous
  Country: US (occurrence: US)
  Receive Date: 20250821
  Receipt Date: 20250821
  Transmission Date: 20251021
  Serious: No
  Sender: SANOFI AVENTIS
  Company Number: US-SA-2025SA245103

PATIENT
  Age: 4 Year
  Sex: Male

DRUGS (1)
  1. DUPIXENT [Suspect]
     Active Substance: DUPILUMAB
     Indication: Dermatitis
     Dosage: 300 MG, QM
     Route: 058

REACTIONS (5)
  - Periorbital swelling [Unknown]
  - Ocular hyperaemia [Unknown]
  - Dry eye [Unknown]
  - Injection site pain [Unknown]
  - Product use in unapproved indication [Unknown]
